FAERS Safety Report 11644103 (Version 3)
Quarter: 2016Q1

REPORT INFORMATION
  Report Type: Spontaneous
  Country: FR (occurrence: FR)
  Receive Date: 20151020
  Receipt Date: 20160222
  Transmission Date: 20160525
  Serious: Yes (Other)
  Sender: FDA-Public Use
  Company Number: FR-PFIZER INC-2015289691

PATIENT
  Age: 67 Year
  Sex: Female
  Weight: 89 kg

DRUGS (7)
  1. JANUVIA [Concomitant]
     Active Substance: SITAGLIPTIN PHOSPHATE
     Indication: DIABETES MELLITUS
     Dosage: 100 (UNIT NOT PROVIDED), 1X/DAY
  2. XANAX [Suspect]
     Active Substance: ALPRAZOLAM
     Indication: ANXIETY
     Dosage: 0.50 MG, 3X/DAY
     Dates: start: 20130618
  3. LEVOTHYROX [Concomitant]
     Active Substance: LEVOTHYROXINE
     Dosage: 100 (UNIT NOT PROVIDED), 1X/DAY
  4. DIAZEPAM. [Concomitant]
     Active Substance: DIAZEPAM
     Dosage: 2 MG, UNK
  5. LAROXYL [Concomitant]
     Active Substance: AMITRIPTYLINE
     Indication: ANXIETY
     Dosage: 25 MG, UNK
  6. SERTRALINE [Concomitant]
     Active Substance: SERTRALINE HYDROCHLORIDE
     Indication: DEPRESSION
     Dosage: 50 (UNIT NOT PROVIDED), 1X/DAY
     Route: 048
     Dates: start: 20130618
  7. NOVONORM [Concomitant]
     Active Substance: REPAGLINIDE
     Indication: DIABETES MELLITUS
     Dosage: 2 (UNIT NOT PROVIDED), 3X/DAY

REACTIONS (7)
  - Thyroid disorder [Unknown]
  - Diabetes mellitus inadequate control [Recovering/Resolving]
  - Visual acuity reduced [Unknown]
  - Depressed mood [Unknown]
  - Weight decreased [Unknown]
  - Pulse abnormal [Unknown]
  - Crying [Unknown]

NARRATIVE: CASE EVENT DATE: 201501
